FAERS Safety Report 6416681-7 (Version None)
Quarter: 2009Q4

REPORT INFORMATION
  Report Type: 
  Country: None (occurrence: None)
  Receive Date: 20091027
  Receipt Date: 20091019
  Transmission Date: 20100525
  Serious: Yes (Hospitalization)
  Sender: FDA-Public Use
  Company Number: JP-ASTRAZENECA-2009SE21610

PATIENT

DRUGS (3)
  1. BLOPRESS [Suspect]
     Indication: HYPERTENSION
     Route: 048
     Dates: end: 20091001
  2. LANSOPRAZOLE [Suspect]
     Route: 065
  3. PLAVIX [Suspect]
     Route: 048

REACTIONS (1)
  - INTERSTITIAL LUNG DISEASE [None]
